FAERS Safety Report 23886171 (Version 3)
Quarter: 2024Q3

REPORT INFORMATION
  Report Type: Spontaneous
  Country: US (occurrence: US)
  Receive Date: 20240522
  Receipt Date: 20240708
  Transmission Date: 20241017
  Serious: Yes (Other)
  Sender: NOVARTIS
  Company Number: US-SANDOZ-SDZ2024US046895

PATIENT
  Age: 7 Year
  Sex: Female

DRUGS (1)
  1. ZOLEDRONIC ACID [Suspect]
     Active Substance: ZOLEDRONIC ACID
     Indication: Osteogenesis imperfecta
     Dosage: 4 MG, 17 TIMES OVER 3 YEARS (68 MG TOTAL)
     Route: 042

REACTIONS (2)
  - Osteosclerosis [Unknown]
  - Femur fracture [Unknown]
